FAERS Safety Report 7112002-5 (Version None)
Quarter: 2010Q4

REPORT INFORMATION
  Report Type: 
  Country: None (occurrence: None)
  Receive Date: 20101119
  Receipt Date: 20101113
  Transmission Date: 20110411
  Serious: No
  Sender: FDA-Public Use
  Company Number: US-PFIZER INC-2010147334

PATIENT
  Sex: Female
  Weight: 54 kg

DRUGS (4)
  1. CHANTIX [Suspect]
     Indication: SMOKING CESSATION THERAPY
     Dosage: 0.5 MG, 1X/DAY
     Route: 048
     Dates: start: 20101103
  2. TIZANIDINE [Concomitant]
     Indication: PAIN
     Dosage: 4 MG, 4X/DAY
     Route: 048
  3. CALCIUM [Concomitant]
     Indication: BONE DISORDER
     Dosage: UNK
     Route: 048
  4. FENTANYL [Concomitant]
     Indication: PAIN
     Dosage: UNK
     Route: 062

REACTIONS (2)
  - ABDOMINAL DISCOMFORT [None]
  - VOMITING [None]
